FAERS Safety Report 7772330 (Version 3)
Quarter: 2014Q3

REPORT INFORMATION
  Report Type: Report from Study
  Country: US (occurrence: US)
  Receive Date: 20110125
  Receipt Date: 20140731
  Transmission Date: 20150326
  Serious: Yes (Hospitalization, Other)
  Sender: FDA-Public Use
  Company Number: US-BIOGENIDEC-2011BI002018

PATIENT
  Sex: Female

DRUGS (2)
  1. GILENYA [Concomitant]
     Active Substance: FINGOLIMOD HYDROCHLORIDE
  2. TYSABRI [Suspect]
     Active Substance: NATALIZUMAB
     Indication: MULTIPLE SCLEROSIS
     Route: 042
     Dates: start: 20070323, end: 20140430

REACTIONS (13)
  - Back disorder [Recovered/Resolved]
  - Bronchitis [Not Recovered/Not Resolved]
  - Hepatic enzyme increased [Recovered/Resolved]
  - Gastric disorder [Not Recovered/Not Resolved]
  - Hypophagia [Not Recovered/Not Resolved]
  - Malaise [Recovered/Resolved]
  - Weight decreased [Recovered/Resolved]
  - Diarrhoea [Not Recovered/Not Resolved]
  - Weight increased [Recovered/Resolved]
  - Gallbladder disorder [Recovered/Resolved]
  - Pancreatitis [Recovered/Resolved]
  - Pain [Recovered/Resolved]
  - Fatigue [Not Recovered/Not Resolved]

NARRATIVE: CASE EVENT DATE: 2007
